FAERS Safety Report 11394782 (Version 1)
Quarter: 2015Q3

REPORT INFORMATION
  Report Type: Spontaneous
  Country: US (occurrence: None)
  Receive Date: 20150817
  Receipt Date: 20150817
  Transmission Date: 20151125
  Serious: Yes (Other)
  Sender: FDA-Public Use
  Company Number: 1937531-2015-00008

PATIENT

DRUGS (1)
  1. ALCARE PLUS [Suspect]
     Active Substance: ALCOHOL

REACTIONS (1)
  - Fall [None]
